FAERS Safety Report 21766106 (Version 1)
Quarter: 2022Q4

REPORT INFORMATION
  Report Type: Report from Study
  Country: US (occurrence: US)
  Receive Date: 20221222
  Receipt Date: 20221222
  Transmission Date: 20230112
  Serious: No
  Sender: FDA-Public Use
  Company Number: US-ABBVIE-4246627

PATIENT
  Sex: Male

DRUGS (1)
  1. VENCLEXTA [Suspect]
     Active Substance: VENETOCLAX
     Indication: Product used for unknown indication
     Dosage: THE ONSET DATE FOR ALL REPORTED ADVERSE EVENTS WERE 2022.
     Route: 048
     Dates: start: 20221120

REACTIONS (5)
  - Back pain [Unknown]
  - Off label use [Unknown]
  - Dry mouth [Unknown]
  - Poor quality sleep [Unknown]
  - Pain in extremity [Unknown]
